FAERS Safety Report 7956974-5 (Version None)
Quarter: 2011Q4

REPORT INFORMATION
  Report Type: 
  Country: None (occurrence: None)
  Receive Date: 20111205
  Receipt Date: 20111205
  Transmission Date: 20120403
  Serious: Yes (Other)
  Sender: FDA-Public Use
  Company Number: None

PATIENT
  Age: 49 Year
  Sex: Female
  Weight: 87.543 kg

DRUGS (1)
  1. ZOLOFT [Suspect]
     Indication: BIPOLAR DISORDER
     Dosage: 300 MG
     Route: 048

REACTIONS (8)
  - IMMOBILE [None]
  - AMNESIA [None]
  - SUICIDAL IDEATION [None]
  - FAECAL INCONTINENCE [None]
  - HALLUCINATION [None]
  - APHASIA [None]
  - DEHYDRATION [None]
  - URINARY INCONTINENCE [None]
